FAERS Safety Report 7212874-X (Version None)
Quarter: 2011Q1

REPORT INFORMATION
  Report Type: 
  Country: None (occurrence: None)
  Receive Date: 20110106
  Receipt Date: 20101228
  Transmission Date: 20110831
  Serious: Yes (Other)
  Sender: FDA-Public Use
  Company Number: US-JNJFOC-20100804649

PATIENT
  Sex: Male

DRUGS (2)
  1. LEVAQUIN [Suspect]
     Indication: SINUSITIS
     Route: 048
  2. LEVAQUIN [Suspect]
     Indication: INFECTION
     Route: 048

REACTIONS (6)
  - BONE PAIN [None]
  - TENDONITIS [None]
  - ARTHRALGIA [None]
  - ROTATOR CUFF SYNDROME [None]
  - MYALGIA [None]
  - DRUG EFFECT DECREASED [None]
